FAERS Safety Report 5276587-6 (Version None)
Quarter: 2007Q1

REPORT INFORMATION
  Report Type: 
  Country: None (occurrence: None)
  Receive Date: 20070327
  Receipt Date: 20070320
  Transmission Date: 20070707
  Serious: Yes (Hospitalization, Other)
  Sender: FDA-Public Use
  Company Number: DK-ELI_LILLY_AND_COMPANY-DK200702005353

PATIENT
  Age: 71 Year
  Sex: Male

DRUGS (5)
  1. OLANZAPINE [Suspect]
     Indication: BIPOLAR I DISORDER
     Dosage: 5 MG, UNK
     Route: 048
     Dates: start: 20050101
  2. OXAPAX [Concomitant]
     Indication: RESTLESSNESS
     Dosage: 15 MG, UNK
  3. CIPRALEX [Concomitant]
     Indication: DEPRESSION
     Dosage: 15 MG, DAILY (1/D)
     Dates: start: 20050101
  4. LAMICTAL [Concomitant]
     Dosage: 200 MG, DAILY (1/D)
     Dates: start: 20040101
  5. AMITRIPTYLINE HCL [Concomitant]
     Indication: DEPRESSION
     Dosage: 150 MG, DAILY (1/D)
     Dates: start: 20050101

REACTIONS (3)
  - FALL [None]
  - MYOCLONUS [None]
  - PNEUMONIA [None]
